FAERS Safety Report 12218098 (Version 1)
Quarter: 2016Q1

REPORT INFORMATION
  Report Type: Spontaneous
  Country: GB (occurrence: GB)
  Receive Date: 20160329
  Receipt Date: 20160329
  Transmission Date: 20160526
  Serious: Yes (Other)
  Sender: FDA-Public Use
  Company Number: GB-BRISTOL-MYERS SQUIBB COMPANY-BMS-2016-019847

PATIENT
  Age: 53 Year
  Sex: Female

DRUGS (1)
  1. TRIAMCINOLONE ACETONIDE. [Suspect]
     Active Substance: TRIAMCINOLONE ACETONIDE
     Indication: OSTEOARTHRITIS
     Dosage: 40 MG/ML, UNK
     Route: 065
     Dates: start: 20160120, end: 20160120

REACTIONS (3)
  - Erythema [Recovered/Resolved]
  - Syncope [Recovered/Resolved]
  - Grunting [Recovered/Resolved]

NARRATIVE: CASE EVENT DATE: 20160120
